FAERS Safety Report 5197645-0 (Version None)
Quarter: 2007Q1

REPORT INFORMATION
  Report Type: 
  Country: None (occurrence: None)
  Receive Date: 20070103
  Receipt Date: 20061222
  Transmission Date: 20070707
  Serious: Yes (Death)
  Sender: FDA-Public Use
  Company Number: TR-PFIZER INC-2006155321

PATIENT
  Sex: Male

DRUGS (3)
  1. CEFOPERAZONE/SULBACTAM [Suspect]
     Dosage: TEXT:SINGLE DOSE
  2. MARIJUANA [Concomitant]
  3. DRUG, UNSPECIFIED [Concomitant]

REACTIONS (1)
  - STEVENS-JOHNSON SYNDROME [None]
